FAERS Safety Report 20961080 (Version 1)
Quarter: 2022Q2

REPORT INFORMATION
  Report Type: Spontaneous
  Country: CN (occurrence: CN)
  Receive Date: 20220615
  Receipt Date: 20220615
  Transmission Date: 20220721
  Serious: Yes (Hospitalization)
  Sender: FDA-Public Use
  Company Number: CN-CELGENE-CHN-20210701904

PATIENT
  Age: 31 Year
  Sex: Female
  Weight: 52 kg

DRUGS (15)
  1. AZACITIDINE [Suspect]
     Active Substance: AZACITIDINE
     Indication: Myelodysplastic syndrome
     Dosage: 75 MILLIGRAM/SQ. METER
     Route: 058
     Dates: start: 20210531, end: 20210606
  2. VENETOCLAX [Suspect]
     Active Substance: VENETOCLAX
     Indication: Myelodysplastic syndrome
     Dosage: 400 MILLIGRAM
     Route: 048
     Dates: start: 20210531, end: 20210613
  3. SODIUM BICARBONATE [Concomitant]
     Active Substance: SODIUM BICARBONATE
     Indication: Infection
     Dosage: FREQUENCY TEXT: NOT PROVIDED
     Route: 048
  4. BICYCLOL [Concomitant]
     Active Substance: BICYCLOL
     Indication: Hepatic function abnormal
     Route: 048
     Dates: end: 20210725
  5. ETHINYL ESTRADIOL [Concomitant]
     Active Substance: ETHINYL ESTRADIOL
     Indication: Heavy menstrual bleeding
     Route: 048
     Dates: start: 20210313, end: 20210607
  6. ADEMETIONINE [Concomitant]
     Active Substance: ADEMETIONINE
     Indication: Prophylaxis
     Dosage: 2G
     Route: 048
     Dates: start: 20210517, end: 20210608
  7. CYSTEINE [Concomitant]
     Active Substance: CYSTEINE
     Indication: Prophylaxis
     Dosage: 200ML
     Route: 042
     Dates: start: 20210520, end: 20210523
  8. CYSTEINE [Concomitant]
     Active Substance: CYSTEINE
     Dosage: 200ML
     Route: 042
     Dates: start: 20210604, end: 20210627
  9. URSODIOL [Concomitant]
     Active Substance: URSODIOL
     Indication: Prophylaxis
     Dosage: 0.75G
     Route: 048
     Dates: start: 20210524, end: 20210708
  10. ZOLPIDEM [Concomitant]
     Active Substance: ZOLPIDEM TARTRATE
     Indication: Insomnia
     Dosage: 10MG
     Route: 048
     Dates: start: 20210526, end: 20210622
  11. POTASSIUM CHLORIDE [Concomitant]
     Active Substance: POTASSIUM CHLORIDE
     Indication: Supplementation therapy
     Dosage: 1 G
     Route: 042
     Dates: start: 20210604, end: 20210617
  12. POTASSIUM CHLORIDE [Concomitant]
     Active Substance: POTASSIUM CHLORIDE
     Dosage: 1 G
     Route: 042
     Dates: start: 20210601, end: 20210613
  13. TORSEMIDE [Concomitant]
     Active Substance: TORSEMIDE
     Indication: Polyuria
     Dosage: 20MG
     Route: 065
     Dates: start: 20210601, end: 20210608
  14. PALONOSETRON [Concomitant]
     Active Substance: PALONOSETRON
     Indication: Antiemetic supportive care
     Dosage: 0.25
     Route: 042
     Dates: start: 20210601, end: 20210608
  15. UNSPECIFIED INGREDIENT [Concomitant]
     Active Substance: UNSPECIFIED INGREDIENT
     Indication: Product used for unknown indication
     Route: 048
     Dates: start: 20210527, end: 20210528

REACTIONS (1)
  - Platelet count decreased [Recovered/Resolved]

NARRATIVE: CASE EVENT DATE: 20210609
